FAERS Safety Report 20599732 (Version 2)
Quarter: 2022Q1

REPORT INFORMATION
  Report Type: Report from Study
  Country: BR (occurrence: BR)
  Receive Date: 20220316
  Receipt Date: 20220320
  Transmission Date: 20220423
  Serious: Yes (Other)
  Sender: FDA-Public Use
  Company Number: BR-JNJFOC-20220326799

PATIENT
  Sex: Male
  Weight: 55 kg

DRUGS (1)
  1. REMICADE [Suspect]
     Active Substance: INFLIXIMAB
     Indication: Crohn^s disease
     Dosage: 4 VIALS
     Route: 042
     Dates: start: 20180320, end: 20181120

REACTIONS (2)
  - Intestinal stenosis [Unknown]
  - Drug ineffective [Unknown]
